FAERS Safety Report 7425427-5 (Version None)
Quarter: 2011Q2

REPORT INFORMATION
  Report Type: 
  Country: None (occurrence: None)
  Receive Date: 20110420
  Receipt Date: 20110415
  Transmission Date: 20111010
  Serious: Yes (Death)
  Sender: FDA-Public Use
  Company Number: US-ASTELLAS-2011US001581

PATIENT
  Sex: Male

DRUGS (1)
  1. PROGRAF [Suspect]
     Indication: RENAL AND LIVER TRANSPLANT
     Dosage: 0.5 MG BI-DAILY, 3 MG BI-DAILY
     Route: 048
     Dates: start: 19990517

REACTIONS (2)
  - INFECTION [None]
  - HEPATIC FAILURE [None]
